FAERS Safety Report 9880731 (Version 1)
Quarter: 2014Q1

REPORT INFORMATION
  Report Type: Spontaneous
  Country: US (occurrence: US)
  Receive Date: 20140207
  Receipt Date: 20140207
  Transmission Date: 20141002
  Serious: Yes (Hospitalization)
  Sender: FDA-Public Use
  Company Number: US-PFIZER INC-2014033283

PATIENT
  Age: 55 Year
  Sex: Female
  Weight: 67.12 kg

DRUGS (14)
  1. XELJANZ [Suspect]
     Indication: RHEUMATOID ARTHRITIS
     Dosage: 5 MG, 2X/DAY
     Route: 048
     Dates: start: 20131120, end: 20140120
  2. METHOTREXATE SODIUM [Suspect]
     Indication: RHEUMATOID ARTHRITIS
     Dosage: UNK
  3. PREDNISONE [Concomitant]
     Dosage: 20 MG, DAILY
  4. PRINIVIL [Concomitant]
     Dosage: UNK
  5. ZETIA [Concomitant]
     Dosage: UNK
  6. TOPAMAX [Concomitant]
     Dosage: UNK
  7. ESTRACE [Concomitant]
     Dosage: UNK
  8. ZOLOFT [Concomitant]
     Dosage: UNK
  9. ZOMIG [Concomitant]
     Dosage: UNK
  10. ZYRTEC [Concomitant]
     Dosage: UNK
  11. LEVOTHYROXINE [Concomitant]
     Dosage: UNK
  12. FOLIC ACID [Concomitant]
     Dosage: UNK
  13. NEURONTIN [Concomitant]
     Dosage: UNK
  14. CITRACAL + D [Concomitant]
     Dosage: UNK

REACTIONS (3)
  - Herpes zoster [Unknown]
  - Fatigue [Not Recovered/Not Resolved]
  - Pain [Not Recovered/Not Resolved]
